FAERS Safety Report 4984702-4 (Version None)
Quarter: 2006Q2

REPORT INFORMATION
  Report Type: 
  Country: None (occurrence: None)
  Receive Date: 20060427
  Receipt Date: 20060424
  Transmission Date: 20061013
  Serious: Yes (Hospitalization)
  Sender: FDA-Public Use
  Company Number: US-SANOFI-SYNTHELABO-A03200602600

PATIENT

DRUGS (3)
  1. ELOXATIN [Suspect]
     Indication: DRUG USE FOR UNKNOWN INDICATION
     Route: 042
  2. FLUOROURACIL [Suspect]
     Dosage: UNK
     Route: 042
  3. LEUCOVORIN [Suspect]
     Dosage: UNK
     Route: 042

REACTIONS (1)
  - LUNG INFILTRATION [None]
